FAERS Safety Report 10008467 (Version 1)
Quarter: 2014Q1

REPORT INFORMATION
  Report Type: Spontaneous
  Country: US (occurrence: None)
  Receive Date: 20140228
  Receipt Date: 20140228
  Transmission Date: 20141002
  Serious: Yes (Other)
  Sender: FDA-Public Use
  Company Number: 225125

PATIENT
  Age: 46 Year
  Sex: Female

DRUGS (1)
  1. PICATO [Suspect]
     Indication: ACTINIC KERATOSIS
     Dosage: (1 D), TOPICAL
     Route: 061
     Dates: start: 20131127

REACTIONS (6)
  - Application site erythema [None]
  - Application site pain [None]
  - Application site swelling [None]
  - Application site exfoliation [None]
  - Application site vesicles [None]
  - Application site discharge [None]
